FAERS Safety Report 5224044-5 (Version None)
Quarter: 2007Q1

REPORT INFORMATION
  Report Type: 
  Country: None (occurrence: None)
  Receive Date: 20070126
  Receipt Date: 20070110
  Transmission Date: 20070707
  Serious: Yes (Hospitalization)
  Sender: FDA-Public Use
  Company Number: DSA_29239_2007

PATIENT
  Age: 36 Year
  Sex: Female

DRUGS (4)
  1. ENALAPRIL MALEATE [Suspect]
     Indication: HYPERTENSION
     Dosage: DF PO
     Route: 048
  2. FENOFIBRATE [Concomitant]
  3. FUROSEMIDE [Concomitant]
  4. ZOPICLONE [Concomitant]

REACTIONS (6)
  - CAESAREAN SECTION [None]
  - CERVIX DYSTOCIA [None]
  - DRUG EXPOSURE DURING PREGNANCY [None]
  - FOETAL HEART RATE DISORDER [None]
  - PREGNANCY [None]
  - PREMATURE LABOUR [None]
